FAERS Safety Report 12753371 (Version 1)
Quarter: 2016Q3

REPORT INFORMATION
  Report Type: Spontaneous
  Country: JP (occurrence: JP)
  Receive Date: 20160916
  Receipt Date: 20160916
  Transmission Date: 20161109
  Serious: Yes (Hospitalization)
  Sender: FDA-Public Use
  Company Number: JP-AMGEN-JPNSP2016125838

PATIENT
  Age: 73 Year
  Weight: 55 kg

DRUGS (11)
  1. G-LASTA [Suspect]
     Active Substance: PEGFILGRASTIM
     Indication: COLONY STIMULATING FACTOR PROPHYLAXIS
     Dosage: 3.6 MG, QD
     Route: 058
     Dates: start: 20150725, end: 20150725
  2. CALSED [Suspect]
     Active Substance: AMRUBICIN HYDROCHLORIDE
     Dosage: 55 MG, QD
     Route: 041
     Dates: start: 20150907, end: 20150909
  3. NAUZELIN [Concomitant]
     Active Substance: DOMPERIDONE
     Indication: PROPHYLAXIS OF NAUSEA AND VOMITING
     Dosage: 10 MG, TID
     Dates: start: 20150817
  4. G-LASTA [Suspect]
     Active Substance: PEGFILGRASTIM
     Dosage: 3.6 MG, QD
     Route: 058
     Dates: start: 20150910, end: 20150910
  5. G-LASTA [Suspect]
     Active Substance: PEGFILGRASTIM
     Dosage: 3.6 MG, QD
     Route: 058
     Dates: start: 20150820, end: 20150820
  6. GASTER [Concomitant]
     Active Substance: FAMOTIDINE
     Indication: GASTRITIS PROPHYLAXIS
     Dosage: 20 MG, TID
     Route: 048
     Dates: start: 20150805
  7. CALSED [Suspect]
     Active Substance: AMRUBICIN HYDROCHLORIDE
     Indication: SMALL CELL LUNG CANCER
     Dosage: 55 MG, QD
     Route: 041
     Dates: start: 20150722, end: 20150724
  8. CODEINE PHOSPHATE [Concomitant]
     Active Substance: CODEINE PHOSPHATE
     Indication: COUGH
     Dosage: 20 MG, TID
     Route: 048
     Dates: start: 20150126
  9. CALSED [Suspect]
     Active Substance: AMRUBICIN HYDROCHLORIDE
     Dosage: 55 MG, QD
     Route: 041
     Dates: start: 20150817, end: 20150819
  10. CALSED [Suspect]
     Active Substance: AMRUBICIN HYDROCHLORIDE
     Dosage: 55 MG, QD
     Route: 041
     Dates: start: 20151014, end: 20151016
  11. ZYPREXA [Concomitant]
     Active Substance: OLANZAPINE
     Dosage: 2.5 MG, QD
     Route: 048
     Dates: start: 20150907

REACTIONS (1)
  - Interstitial lung disease [Recovered/Resolved]

NARRATIVE: CASE EVENT DATE: 20150920
